FAERS Safety Report 14724481 (Version 2)
Quarter: 2018Q3

REPORT INFORMATION
  Report Type: Report from Study
  Country: US (occurrence: US)
  Receive Date: 20180405
  Receipt Date: 20180928
  Transmission Date: 20181010
  Serious: No
  Sender: FDA-Public Use
  Company Number: US-AMGEN-USASL2017160736

PATIENT
  Age: 80 Year
  Sex: Female

DRUGS (4)
  1. CALTRATE [Concomitant]
     Active Substance: CALCIUM CARBONATE
     Dosage: UNK UNK, BID
  2. PROLIA [Suspect]
     Active Substance: DENOSUMAB
     Indication: BONE DISORDER
     Dosage: 60 MG, Q6MO
     Route: 058
  3. VITAMIN D [Concomitant]
     Active Substance: CHOLECALCIFEROL
     Dosage: 2000 IU, QD
  4. PROLIA [Suspect]
     Active Substance: DENOSUMAB
     Indication: BREAST CANCER FEMALE

REACTIONS (1)
  - Off label use [Unknown]
